FAERS Safety Report 23424293 (Version 1)
Quarter: 2024Q1

REPORT INFORMATION
  Report Type: Spontaneous
  Country: US (occurrence: US)
  Receive Date: 20240120
  Receipt Date: 20240120
  Transmission Date: 20240410
  Serious: No
  Sender: FDA-Public Use
  Company Number: US-AUROBINDO-AUR-APL-2023-042958

PATIENT
  Sex: Male
  Weight: 22 kg

DRUGS (1)
  1. CEFDINIR [Suspect]
     Active Substance: CEFDINIR
     Indication: Otitis media
     Dosage: 3.08 MILLILITER, TWO TIMES A DAY (3.08 ML BY MOUTH TWICE DAILY FOR 07 DAYS)
     Route: 048
     Dates: start: 20230608

REACTIONS (4)
  - Insomnia [Recovered/Resolved]
  - Restlessness [Recovered/Resolved]
  - Accidental exposure to product by child [Unknown]
  - Wrong technique in product usage process [Unknown]

NARRATIVE: CASE EVENT DATE: 20230608
